FAERS Safety Report 7251401-8 (Version None)
Quarter: 2011Q1

REPORT INFORMATION
  Report Type: 
  Country: None (occurrence: None)
  Receive Date: 20110128
  Receipt Date: 20110119
  Transmission Date: 20110831
  Serious: Yes (Hospitalization, Disabling, Other)
  Sender: FDA-Public Use
  Company Number: US-CEPHALON-2010005427

PATIENT
  Sex: Female
  Weight: 64 kg

DRUGS (3)
  1. SEROQUEL XR [Concomitant]
     Dates: start: 20101201
  2. LAMICTAL [Concomitant]
  3. PROVIGIL [Suspect]
     Route: 048

REACTIONS (4)
  - HALLUCINATION, AUDITORY [None]
  - PARANOIA [None]
  - PSYCHOTIC DISORDER [None]
  - SUICIDAL IDEATION [None]
